FAERS Safety Report 4454492-2 (Version None)
Quarter: 2004Q3

REPORT INFORMATION
  Report Type: 
  Country: None (occurrence: None)
  Receive Date: 20040917
  Receipt Date: 20040917
  Transmission Date: 20050211
  Serious: Yes (Hospitalization)
  Sender: FDA-Public Use
  Company Number: None

PATIENT
  Age: 41 Year
  Sex: Male
  Weight: 104.3273 kg

DRUGS (2)
  1. LEVAQUIN [Suspect]
     Indication: ABSCESS
     Dosage: 1 TABLE EVERY DAY ORAL
     Route: 048
     Dates: start: 20040816, end: 20040820
  2. LEVAQUIN [Suspect]
     Indication: FOLLICULITIS
     Dosage: 1 TABLE EVERY DAY ORAL
     Route: 048
     Dates: start: 20040816, end: 20040820

REACTIONS (5)
  - ANXIETY [None]
  - ARTHRALGIA [None]
  - DYSPNOEA [None]
  - HEART RATE INCREASED [None]
  - MYALGIA [None]
